FAERS Safety Report 9599703 (Version 1)
Quarter: 2013Q4

REPORT INFORMATION
  Report Type: Spontaneous
  Country: US (occurrence: US)
  Receive Date: 20131004
  Receipt Date: 20131004
  Transmission Date: 20140711
  Serious: No
  Sender: FDA-Public Use
  Company Number: US-AMGEN-USASP2013031109

PATIENT
  Age: 57 Year
  Sex: Female
  Weight: 59.86 kg

DRUGS (9)
  1. ENBREL [Suspect]
     Indication: RHEUMATOID ARTHRITIS
     Dosage: UNK
  2. FISH OIL [Concomitant]
     Dosage: UNK
  3. OMEPRAZOLE [Concomitant]
     Dosage: UNK
  4. FOLIC ACID [Concomitant]
     Dosage: UNK
  5. FOSAMAX [Concomitant]
     Dosage: UNK
  6. LEVOXYL [Concomitant]
     Dosage: UNK
  7. METHOTREXATE [Concomitant]
     Dosage: UNK
  8. VITAMIN C                          /00008001/ [Concomitant]
     Dosage: UNK
  9. PREDNISONE [Concomitant]
     Dosage: UNK

REACTIONS (1)
  - Drug ineffective [Unknown]
